FAERS Safety Report 8769444 (Version 1)
Quarter: 2012Q4

REPORT INFORMATION
  Report Type: 
  Country: US (occurrence: US)
  Receive Date: 20120905
  Receipt Date: 20120905
  Transmission Date: 20130627
  Serious: No
  Sender: FDA-Public Use
  Company Number: US-PFIZER INC-2012215266

PATIENT
  Age: 38 Year
  Sex: Female
  Weight: 90.7 kg

DRUGS (2)
  1. LYRICA [Suspect]
     Indication: FIBROMYALGIA
     Dosage: (50mg two in morning and 2 in evening), 2x/day
     Route: 048
     Dates: start: 201109
  2. LYRICA [Suspect]
     Dosage: (50mg two in morning and 3 in evening), 2x/day
     Route: 048

REACTIONS (2)
  - Drug administration error [Unknown]
  - Drug ineffective [Unknown]
